FAERS Safety Report 7464742-6 (Version None)
Quarter: 2011Q2

REPORT INFORMATION
  Report Type: 
  Country: None (occurrence: None)
  Receive Date: 20110509
  Receipt Date: 20110429
  Transmission Date: 20111010
  Serious: Yes (Other)
  Sender: FDA-Public Use
  Company Number: US-US-EMD SERONO, INC.-7045941

PATIENT
  Sex: Female

DRUGS (5)
  1. REBIF [Suspect]
     Indication: PRODUCT USED FOR UNKNOWN INDICATION
     Route: 058
     Dates: start: 20100830
  2. UNSPECIFIED PAIN MEDICATIONS [Concomitant]
     Indication: BACK PAIN
  3. CONTINUOUS POSITIVE AIRWAY PRESSURE [Concomitant]
     Indication: SLEEP APNOEA SYNDROME
  4. LEXAPRO [Concomitant]
     Indication: DEPRESSION
  5. UNSPECIFIED ANTIDEPRESSANTS [Concomitant]
     Indication: DEPRESSION

REACTIONS (6)
  - ASTHENIA [None]
  - MOOD SWINGS [None]
  - HEADACHE [None]
  - INJECTION SITE REACTION [None]
  - SUICIDAL IDEATION [None]
  - DEPRESSION [None]
